FAERS Safety Report 24950260 (Version 3)
Quarter: 2025Q1

REPORT INFORMATION
  Report Type: Spontaneous
  Country: JP (occurrence: JP)
  Receive Date: 20250210
  Receipt Date: 20250328
  Transmission Date: 20250409
  Serious: Yes (Death, Other)
  Sender: ASTELLAS
  Company Number: JP-ASTELLAS-2025-AER-001349

PATIENT
  Age: 71 Year
  Sex: Male
  Weight: 34 kg

DRUGS (19)
  1. VYLOY [Suspect]
     Active Substance: ZOLBETUXIMAB-CLZB
     Indication: Gastric cancer
     Route: 042
     Dates: start: 20250109, end: 20250109
  2. VYLOY [Suspect]
     Active Substance: ZOLBETUXIMAB-CLZB
     Route: 042
     Dates: start: 20250130, end: 20250130
  3. OXALIPLATIN [Suspect]
     Active Substance: OXALIPLATIN
     Indication: Gastric cancer
     Route: 042
     Dates: start: 20240905, end: 20250130
  4. FERROUS CITRATE [Concomitant]
     Active Substance: FERROUS CITRATE
     Indication: Anaemia
     Route: 065
     Dates: start: 20240807
  5. ENSURE [Concomitant]
     Active Substance: AMINO ACIDS\DEXTROSE\ELECTROLYTES NOS\SOYBEAN OIL\VITAMINS
     Indication: Nutritional supplementation
     Route: 065
     Dates: start: 20240807
  6. FESIN Intravenous Injection [Concomitant]
     Indication: Anaemia
     Route: 065
     Dates: start: 20240816
  7. CAPECITABINE [Concomitant]
     Active Substance: CAPECITABINE
     Indication: Gastric cancer
     Route: 048
     Dates: start: 20240905, end: 20250122
  8. DEXAMETHASONE SODIUM PHOSPHATE [Concomitant]
     Active Substance: DEXAMETHASONE SODIUM PHOSPHATE
     Indication: Prophylaxis of nausea and vomiting
     Route: 065
     Dates: start: 20240905
  9. GRANISETRON [Concomitant]
     Active Substance: GRANISETRON
     Indication: Prophylaxis of nausea and vomiting
     Route: 065
     Dates: start: 20240905, end: 20241219
  10. ANAMORELIN HYDROCHLORIDE [Concomitant]
     Active Substance: ANAMORELIN HYDROCHLORIDE
     Indication: Cachexia
     Route: 065
     Dates: start: 20240907
  11. ENORAS for Enteral Use [Concomitant]
     Indication: Nutritional supplementation
     Route: 065
     Dates: start: 20240911
  12. HERBALS [Concomitant]
     Active Substance: HERBALS
     Indication: Neuropathy peripheral
     Route: 065
     Dates: start: 20241117
  13. AROKARIS drip infusion [Concomitant]
     Indication: Prophylaxis of nausea and vomiting
     Route: 065
     Dates: start: 20250109
  14. PALONOSETRON [Concomitant]
     Active Substance: PALONOSETRON
     Indication: Prophylaxis of nausea and vomiting
     Route: 065
     Dates: start: 20250109
  15. POLARAMINE [Concomitant]
     Active Substance: DEXCHLORPHENIRAMINE MALEATE
     Indication: Prophylaxis of nausea and vomiting
     Route: 065
     Dates: start: 20250109
  16. METOCLOPRAMIDE [Concomitant]
     Active Substance: METOCLOPRAMIDE
     Indication: Vomiting
     Route: 048
     Dates: start: 20250109
  17. ACETAMINOPHEN [Concomitant]
     Active Substance: ACETAMINOPHEN
     Indication: Pyrexia
     Route: 048
     Dates: start: 20250116
  18. DEXTROSE [Concomitant]
     Active Substance: DEXTROSE MONOHYDRATE
     Indication: Hypoglycaemia
     Route: 065
     Dates: start: 20250203
  19. LOXOPROFEN [Concomitant]
     Active Substance: LOXOPROFEN
     Indication: Abdominal pain
     Route: 048
     Dates: start: 20250110

REACTIONS (8)
  - Hypoglycaemia [Fatal]
  - Hyperammonaemia [Fatal]
  - Altered state of consciousness [Fatal]
  - Platelet count decreased [Unknown]
  - Pneumonia [Unknown]
  - Vomiting [Recovered/Resolved]
  - Abdominal pain [Recovered/Resolved]
  - Pyrexia [Recovered/Resolved]

NARRATIVE: CASE EVENT DATE: 20250109
